FAERS Safety Report 19588360 (Version 1)
Quarter: 2021Q3

REPORT INFORMATION
  Report Type: Spontaneous
  Country: US (occurrence: US)
  Receive Date: 20210721
  Receipt Date: 20210721
  Transmission Date: 20211014
  Serious: Yes (Death)
  Sender: FDA-Public Use
  Company Number: None

PATIENT
  Age: 76 Year
  Sex: Female

DRUGS (2)
  1. ARANESP [Suspect]
     Active Substance: DARBEPOETIN ALFA
     Dosage: ?          OTHER FREQUENCY:WEEKLY;?
     Route: 058
  2. VITAMIN D 2000 IU [Concomitant]

REACTIONS (2)
  - Renal failure [None]
  - Sepsis [None]
